FAERS Safety Report 26187333 (Version 1)
Quarter: 2025Q4

REPORT INFORMATION
  Report Type: Spontaneous
  Country: EU (occurrence: EU)
  Receive Date: 20251222
  Receipt Date: 20251222
  Transmission Date: 20260117
  Serious: Yes (Death)
  Sender: ACCORD
  Company Number: None

PATIENT
  Age: 53 Year
  Sex: Male
  Weight: 135 kg

DRUGS (13)
  1. BORTEZOMIB [Suspect]
     Active Substance: BORTEZOMIB
     Indication: Plasma cell myeloma
     Dosage: STRENGTH: 2.5 MG/ML, DOSE: 3 MG 1 X WEEKLY
     Dates: start: 20250925, end: 20251023
  2. LENALIDOMIDE [Suspect]
     Active Substance: LENALIDOMIDE
     Indication: Plasma cell myeloma
     Dosage: STRENGTH: 25 MG, 1 CAPS/DAY 21 DAYS IN A ROW
     Dates: start: 20250925, end: 20251023
  3. DARATUMUMAB [Suspect]
     Active Substance: DARATUMUMAB
     Indication: Plasma cell myeloma
     Dosage: STRENGTH: 1800 MG, SUBCUTANEOUSLY 1 X WEEKLY
     Dates: start: 20250925, end: 20251023
  4. DEXAMETHASONE [Suspect]
     Active Substance: DEXAMETHASONE
     Indication: Product used for unknown indication
     Dosage: 20 MG THE DAY AFTER DARATUMUMAB ADMINISTRATION
     Dates: end: 20251023
  5. PANTOPRAZOLE SODIUM [Concomitant]
     Active Substance: PANTOPRAZOLE SODIUM
     Dosage: 1 X 1, STRENGTH: 40 MG
  6. ANALGIN [Concomitant]
     Dosage: 3 X 2 TBL DAILY, STRENGTH: 500 MG
  7. ACETAMINOPHEN [Concomitant]
     Active Substance: ACETAMINOPHEN
     Dosage: 3 X 1, STRENGTH: 1000 MG
  8. FRAGMIN [Concomitant]
     Active Substance: DALTEPARIN SODIUM
     Dosage: STRENGTH: 5.000 I.E./0.2 ML
  9. CALCIUM CARBONATE [Concomitant]
     Active Substance: CALCIUM CARBONATE
     Dosage: 1 X 1, STRENGTH: 1 GM
  10. PLIVIT [Concomitant]
     Dosage: STRENGTH: 4000 I.E./ML?DOSE: 35 GTT 1 X WEEKLY
  11. ACYCLOVIR [Concomitant]
     Active Substance: ACYCLOVIR
     Dosage: 2 X 1, STRENGTH: 200 MG
  12. RAMIPRIL [Concomitant]
     Active Substance: RAMIPRIL
     Indication: Hypertension
     Dosage: STRENGTH: 10 MG
  13. AMLODIPINE [Concomitant]
     Active Substance: AMLODIPINE BESYLATE
     Indication: Hypertension
     Dosage: STRENGTH: 10 MG

REACTIONS (1)
  - Sudden cardiac death [Fatal]

NARRATIVE: CASE EVENT DATE: 20251024
